FAERS Safety Report 5127225-4 (Version None)
Quarter: 2006Q4

REPORT INFORMATION
  Report Type: 
  Country: None (occurrence: None)
  Receive Date: 20061010
  Receipt Date: 20061003
  Transmission Date: 20070319
  Serious: Yes (Life-Threatening, Hospitalization)
  Sender: FDA-Public Use
  Company Number: 233842K06USA

PATIENT
  Age: 39 Year
  Sex: Female
  Weight: 68.0396 kg

DRUGS (3)
  1. REBIF [Suspect]
     Indication: MULTIPLE SCLEROSIS
     Dosage: 44 MCG, 3 IN 1 WEEKS, SUBCUTANEOUS
     Route: 058
     Dates: start: 20050602, end: 20050717
  2. CLARITIN [Concomitant]
  3. DOXEPIN (DOXEPIN/00138001/) [Concomitant]

REACTIONS (4)
  - BRONCHOSPASM [None]
  - PANIC ATTACK [None]
  - PHARYNGEAL OEDEMA [None]
  - RESPIRATORY ARREST [None]
